FAERS Safety Report 5176438-4 (Version None)
Quarter: 2006Q4

REPORT INFORMATION
  Report Type: 
  Country: None (occurrence: None)
  Receive Date: 20061215
  Receipt Date: 20061208
  Transmission Date: 20070319
  Serious: Yes (Hospitalization, Other)
  Sender: FDA-Public Use
  Company Number: JP-NOVOPROD-259187

PATIENT
  Age: 35 Year
  Sex: Female
  Weight: 60 kg

DRUGS (3)
  1. NOVOLIN N [Suspect]
     Dosage: 19 IU, QD
     Route: 058
     Dates: start: 20010101
  2. HUMALOG [Concomitant]
     Dosage: 26 IU, QD
     Route: 058
     Dates: start: 20010101
  3. HYDRALAZINE HCL [Concomitant]

REACTIONS (14)
  - ABORTION THREATENED [None]
  - AUTONOMIC NEUROPATHY [None]
  - BLOOD GLUCOSE FLUCTUATION [None]
  - CAESAREAN SECTION [None]
  - CREATININE RENAL CLEARANCE DECREASED [None]
  - DIABETIC AUTONOMIC NEUROPATHY [None]
  - DRUG EXPOSURE DURING PREGNANCY [None]
  - GASTROINTESTINAL HYPOMOTILITY [None]
  - HYPERTENSION [None]
  - HYPERTENSIVE NEPHROPATHY [None]
  - HYPOGLYCAEMIC UNCONSCIOUSNESS [None]
  - PREGNANCY [None]
  - PULMONARY OEDEMA [None]
  - VOMITING [None]
